FAERS Safety Report 9108339 (Version 2)
Quarter: 2013Q2

REPORT INFORMATION
  Report Type: Spontaneous
  Country: US (occurrence: US)
  Receive Date: 20130222
  Receipt Date: 20130424
  Transmission Date: 20140414
  Serious: Yes (Hospitalization)
  Sender: FDA-Public Use
  Company Number: US-B.I. PHARMACEUTICALS,INC./RIDGEFIELD-2013-BI-04308BP

PATIENT
  Age: 76 Year
  Sex: Female
  Weight: 79.38 kg

DRUGS (11)
  1. PRADAXA [Suspect]
     Indication: ANTICOAGULANT THERAPY
     Dosage: 300 MG
     Dates: start: 20120227, end: 20120309
  2. PRADAXA [Suspect]
     Indication: ATRIAL FIBRILLATION
  3. LORAZEPAM [Concomitant]
     Dates: start: 1997, end: 2012
  4. DARVOCET [Concomitant]
     Dates: start: 1997, end: 2012
  5. LORTAB [Concomitant]
     Dates: start: 2007
  6. DONEPEZIL [Concomitant]
     Dates: start: 2009
  7. ATENOLOL [Concomitant]
     Dates: start: 1997, end: 2012
  8. FLUOXETINE [Concomitant]
     Dates: start: 2009
  9. LISINOPRIL [Concomitant]
     Indication: DYSLIPIDAEMIA
  10. ASPIRIN [Concomitant]
  11. CRESTOR [Concomitant]

REACTIONS (4)
  - Haemorrhagic anaemia [Unknown]
  - Contusion [Unknown]
  - Occult blood positive [Unknown]
  - Haematochezia [Recovered/Resolved]
